FAERS Safety Report 6007143-X (Version None)
Quarter: 2008Q4

REPORT INFORMATION
  Report Type: 
  Country: None (occurrence: None)
  Receive Date: 20081217
  Receipt Date: 20080128
  Transmission Date: 20090506
  Serious: No
  Sender: FDA-Public Use
  Company Number: US-ASTRAZENECA-2008UW01954

PATIENT
  Age: 80 Year
  Sex: Female

DRUGS (4)
  1. CRESTOR [Suspect]
     Indication: BLOOD CHOLESTEROL INCREASED
     Route: 048
     Dates: start: 20071101
  2. SYNTHROID [Concomitant]
  3. TOPROL-XL [Concomitant]
     Route: 048
  4. DIOVAN [Concomitant]

REACTIONS (6)
  - CHROMATURIA [None]
  - CONSTIPATION [None]
  - FLATULENCE [None]
  - MUSCLE SPASMS [None]
  - NASAL DISORDER [None]
  - THROAT IRRITATION [None]
